FAERS Safety Report 5099279-5 (Version None)
Quarter: 2006Q3

REPORT INFORMATION
  Report Type: 
  Country: None (occurrence: None)
  Receive Date: 20060731
  Receipt Date: 20051107
  Transmission Date: 20061208
  Serious: Yes (Life-Threatening, Hospitalization)
  Sender: FDA-Public Use
  Company Number: US-2005-023334

PATIENT
  Age: 54 Year
  Sex: Female
  Weight: 65.8 kg

DRUGS (3)
  1. MAGNEVIST [Suspect]
     Indication: NUCLEAR MAGNETIC RESONANCE IMAGING
     Dosage: 0.1 ML, 1 DOSE, INTRAVENOUS
     Route: 042
     Dates: start: 20051012, end: 20051012
  2. PREMARIN [Concomitant]
  3. ANTIHYPERTENSIVES [Concomitant]

REACTIONS (2)
  - CONVULSION [None]
  - HYPERTENSION [None]
